FAERS Safety Report 19509256 (Version 1)
Quarter: 2021Q3

REPORT INFORMATION
  Report Type: Spontaneous
  Country: NL (occurrence: NL)
  Receive Date: 20210709
  Receipt Date: 20210709
  Transmission Date: 20211014
  Serious: Yes (Death)
  Sender: FDA-Public Use
  Company Number: NL-SUN PHARMACEUTICAL INDUSTRIES LTD-2021RR-303440

PATIENT
  Age: 65 Year
  Sex: Female
  Weight: 58 kg

DRUGS (7)
  1. PROPRANOLOL CAPSULE MGA  80MG / BRAND NAME NOT SPECIFIEDPROPRANOLOL... [Concomitant]
     Indication: PRODUCT USED FOR UNKNOWN INDICATION
     Dosage: MODIFIED?RELEASE CAPSULE, 80 MG (MILLIGRAMS) ()
     Route: 065
  2. PRIMIDON CAPSULE 62,5MG / BRAND NAME NOT SPECIFIEDPRIMIDON CAPSULE ... [Concomitant]
     Indication: PRODUCT USED FOR UNKNOWN INDICATION
     Dosage: 250 MG ()
     Route: 065
  3. ASTRAZENECA COVID?19 VACCINE [Suspect]
     Active Substance: AZD-1222
     Indication: COVID-19 IMMUNISATION
     Dosage: 1 DOSAGE FORM, UNK
     Route: 065
     Dates: start: 20210615
  4. SIMVASTATINE TABLET FO 10MG / BRAND NAME NOT SPECIFIEDSIMVASTATINE ... [Concomitant]
     Indication: PRODUCT USED FOR UNKNOWN INDICATION
     Dosage: FILM?COATED TABLET, 10 MG (MILLIGRAMS) ()
     Route: 065
  5. FINGOLIMOD. [Suspect]
     Active Substance: FINGOLIMOD
     Indication: PRODUCT USED FOR UNKNOWN INDICATION
     Dosage: UNK
     Route: 065
     Dates: start: 20131001
  6. COLECALCIFEROL CAPSULE   5600IE / BRAND NAME NOT SPECIFIEDCOLECALCI... [Concomitant]
     Indication: PRODUCT USED FOR UNKNOWN INDICATION
     Dosage: CAPSULE, 5600 UNITS ()
     Route: 065
  7. OXYBUTYNINE STROOP 1MG/ML / DRIDASE SIROOP 1MG/MLDRIDASE SIROOP 1MG... [Concomitant]
     Indication: PRODUCT USED FOR UNKNOWN INDICATION
     Dosage: UNK
     Route: 065

REACTIONS (1)
  - Cardiac death [Fatal]

NARRATIVE: CASE EVENT DATE: 20210619
